FAERS Safety Report 4501969-7 (Version None)
Quarter: 2004Q4

REPORT INFORMATION
  Report Type: 
  Country: None (occurrence: None)
  Receive Date: 20041115
  Receipt Date: 20041115
  Transmission Date: 20050328
  Serious: Yes (Other)
  Sender: FDA-Public Use
  Company Number: None

PATIENT
  Sex: Female
  Weight: 54.6584 kg

DRUGS (1)
  1. FLUNISOLIDE [Suspect]
     Indication: RHINITIS
     Dosage: TWO SPRAYS BID NASAL
     Route: 045
     Dates: start: 20040624, end: 20040825

REACTIONS (2)
  - DYSPNOEA [None]
  - POSTNASAL DRIP [None]
